FAERS Safety Report 5839361-5 (Version None)
Quarter: 2008Q3

REPORT INFORMATION
  Report Type: 
  Country: None (occurrence: None)
  Receive Date: 20080806
  Receipt Date: 20080725
  Transmission Date: 20090109
  Serious: Yes (Hospitalization)
  Sender: FDA-Public Use
  Company Number: 2008-181249-NL

PATIENT
  Age: 39 Year
  Sex: Female

DRUGS (3)
  1. ETONOGESTREL (BATCH #: 6942200-686266) [Suspect]
     Indication: CONTRACEPTION
     Dosage: SUBDERMAL
     Route: 059
     Dates: start: 20051201, end: 20080710
  2. LEVOTHYROXINE SODIUM [Concomitant]
  3. LAMOTRIGINE [Concomitant]

REACTIONS (3)
  - ENDOMETRIAL ATROPHY [None]
  - ENDOMETRIAL DYSPLASIA [None]
  - UTERINE LEIOMYOMA [None]
